FAERS Safety Report 15203287 (Version 1)
Quarter: 2018Q3

REPORT INFORMATION
  Report Type: Spontaneous
  Country: JP (occurrence: JP)
  Receive Date: 20180726
  Receipt Date: 20180726
  Transmission Date: 20181010
  Serious: Yes (Death)
  Sender: FDA-Public Use
  Company Number: JP-PFIZER INC-2018219019

PATIENT
  Age: 78 Year
  Sex: Male
  Weight: 52 kg

DRUGS (1)
  1. SUTENT [Suspect]
     Active Substance: SUNITINIB MALATE
     Dosage: 3 DF, 1X/DAY( IN THE MORNING)
     Route: 048
     Dates: start: 20180409, end: 20180422

REACTIONS (3)
  - Pneumonia [Fatal]
  - Pneumonia aspiration [Fatal]
  - Neoplasm progression [Fatal]

NARRATIVE: CASE EVENT DATE: 201804
